FAERS Safety Report 8349254-X (Version None)
Quarter: 2012Q2

REPORT INFORMATION
  Report Type: 
  Country: None (occurrence: None)
  Receive Date: 20120510
  Receipt Date: 20120504
  Transmission Date: 20120825
  Serious: Yes (Hospitalization)
  Sender: FDA-Public Use
  Company Number: PHHY2009AU50566

PATIENT
  Sex: Female

DRUGS (1)
  1. CLOZARIL [Suspect]
     Dosage: 700 MG, UNK
     Dates: start: 19940607

REACTIONS (4)
  - CONDITION AGGRAVATED [None]
  - TOOTH ABSCESS [None]
  - SCHIZOPHRENIA, PARANOID TYPE [None]
  - SCHIZOPHRENIA [None]
